FAERS Safety Report 13035345 (Version 1)
Quarter: 2016Q4

REPORT INFORMATION
  Report Type: Spontaneous
  Country: US (occurrence: US)
  Receive Date: 20161216
  Receipt Date: 20161216
  Transmission Date: 20170207
  Serious: Yes (Hospitalization)
  Sender: FDA-Public Use
  Company Number: None

PATIENT
  Age: 80 Year
  Sex: Male

DRUGS (1)
  1. IMATINIB 100 MG SUN PHARMA [Suspect]
     Active Substance: IMATINIB
     Route: 048
     Dates: start: 20150730

REACTIONS (1)
  - Thrombosis [None]

NARRATIVE: CASE EVENT DATE: 20161211
